FAERS Safety Report 9049728 (Version 2)
Quarter: 2014Q1

REPORT INFORMATION
  Report Type: Report from Study
  Country: US (occurrence: US)
  Receive Date: 20130205
  Receipt Date: 20140328
  Transmission Date: 20141002
  Serious: Yes (Hospitalization)
  Sender: FDA-Public Use
  Company Number: US-VERTEX PHARMACEUTICALS INC.-2013-001201

PATIENT
  Sex: Male
  Weight: 54 kg

DRUGS (11)
  1. VX-770 [Suspect]
     Indication: CYSTIC FIBROSIS
     Dosage: 150 MG, BID
     Route: 048
     Dates: start: 20120228
  2. ZYVOX [Concomitant]
  3. PEPTAMEN [Concomitant]
  4. CLARITIN [Concomitant]
  5. MULTIVITAMIN [Concomitant]
  6. ZANTAC [Concomitant]
  7. ZENPEP [Concomitant]
  8. PULMOZYME [Concomitant]
  9. FLONASE [Concomitant]
  10. VITAMIN D [Concomitant]
  11. VITAMIN C [Concomitant]

REACTIONS (4)
  - Infective pulmonary exacerbation of cystic fibrosis [Unknown]
  - Weight decreased [Unknown]
  - Retching [Unknown]
  - Headache [Unknown]
